FAERS Safety Report 21851869 (Version 1)
Quarter: 2023Q1

REPORT INFORMATION
  Report Type: Spontaneous
  Country: ES (occurrence: ES)
  Receive Date: 20230112
  Receipt Date: 20230112
  Transmission Date: 20230417
  Serious: Yes (Other)
  Sender: FDA-Public Use
  Company Number: None

PATIENT
  Age: 76 Year
  Sex: Male

DRUGS (6)
  1. ACYCLOVIR [Suspect]
     Active Substance: ACYCLOVIR
     Indication: Herpes zoster meningoencephalitis
     Dosage: 750.0 MG C/8 HOURS, (201A)
     Route: 065
     Dates: start: 20220803, end: 20220816
  2. IBANDRONIC ACID CINFA [Concomitant]
     Indication: Osteoporosis
     Dosage: 150.0 MG C/28 DAYS, EFG, 3 TABLETS
     Route: 065
     Dates: start: 20191203
  3. CHOLECALCIFEROL [Concomitant]
     Active Substance: CHOLECALCIFEROL
     Indication: Vitamin D deficiency
     Dosage: 25000.0 UI C/15 DAYS, 25,000 IU/2.5 ML, 4 VIALS OF 2.5 ML
     Route: 065
     Dates: start: 20191203
  4. BENSERAZIDE HYDROCHLORIDE\LEVODOPA [Concomitant]
     Active Substance: BENSERAZIDE HYDROCHLORIDE\LEVODOPA
     Indication: Parkinson^s disease
     Dosage: 1.5 COMP DECOCE, STRENGTH : 200MG/50MG, 100 TABLETS
     Route: 065
     Dates: start: 20200720
  5. MIRABEGRON [Concomitant]
     Active Substance: MIRABEGRON
     Indication: Pollakiuria
     Dosage: 50.0 MG C/24 H, 30 TABLETS
     Route: 065
     Dates: start: 20220430
  6. NEUPRO [Concomitant]
     Active Substance: ROTIGOTINE
     Indication: Parkinson^s disease
     Dosage: 6.0 MG C/24 H, 6 MG/24 H, 28 PATCHES
     Route: 065
     Dates: start: 20201028

REACTIONS (1)
  - Acute kidney injury [Recovered/Resolved]

NARRATIVE: CASE EVENT DATE: 20220816
